FAERS Safety Report 4625876-4 (Version None)
Quarter: 2005Q1

REPORT INFORMATION
  Report Type: 
  Country: None (occurrence: None)
  Receive Date: 20050330
  Receipt Date: 20050316
  Transmission Date: 20050727
  Serious: No
  Sender: FDA-Public Use
  Company Number: US014927

PATIENT
  Age: 9 Month
  Sex: Female

DRUGS (1)
  1. ACTIQ [Suspect]
     Dates: start: 20030821, end: 20030821

REACTIONS (1)
  - ACCIDENTAL EXPOSURE [None]
